FAERS Safety Report 4991189-4 (Version None)
Quarter: 2006Q2

REPORT INFORMATION
  Report Type: 
  Country: None (occurrence: None)
  Receive Date: 20060427
  Receipt Date: 20060413
  Transmission Date: 20061013
  Serious: Yes (Hospitalization)
  Sender: FDA-Public Use
  Company Number: OK-ELI_LILLY_AND_CO-EV

PATIENT
  Age: 69 Year
  Sex: Male
  Weight: 85.1 kg

DRUGS (13)
  1. PERMAX [Suspect]
     Indication: DYSTONIA
     Dosage: 1 MG; QID; PO
     Route: 048
     Dates: start: 19980101, end: 20040623
  2. PERMAX [Suspect]
     Indication: RESTLESS LEGS SYNDROME
     Dosage: 1 MG; QID; PO
     Route: 048
     Dates: start: 19980101, end: 20040623
  3. EFFEXOR [Concomitant]
  4. RIVOTRIL [Concomitant]
  5. BACLOFEN [Concomitant]
  6. SINALFA [Concomitant]
  7. ACETYLSALICYLIC ACID SRT [Concomitant]
  8. MAGNESIUM OXIDE [Concomitant]
  9. HERBAL PREPARATION [Concomitant]
  10. TEGRETOL [Concomitant]
  11. FLUTICASONE PROPIONATE [Concomitant]
  12. SALMETEROL [Concomitant]
  13. DOLOL [Concomitant]

REACTIONS (15)
  - ANAEMIA [None]
  - C-REACTIVE PROTEIN INCREASED [None]
  - CHEST X-RAY ABNORMAL [None]
  - FATIGUE [None]
  - HAEMOGLOBIN DECREASED [None]
  - HYDRONEPHROSIS [None]
  - LABORATORY TEST ABNORMAL [None]
  - LYMPHOEDEMA [None]
  - NUCLEAR MAGNETIC RESONANCE IMAGING ABNORMAL [None]
  - OEDEMA PERIPHERAL [None]
  - RED BLOOD CELL SEDIMENTATION RATE INCREASED [None]
  - RETROPERITONEAL FIBROSIS [None]
  - SCAN ABDOMEN ABNORMAL [None]
  - SCROTAL SWELLING [None]
  - WEIGHT INCREASED [None]
